FAERS Safety Report 9939930 (Version 1)
Quarter: 2014Q1

REPORT INFORMATION
  Report Type: Report from Study
  Country: US (occurrence: US)
  Receive Date: 20140303
  Receipt Date: 20140303
  Transmission Date: 20141002
  Serious: No
  Sender: FDA-Public Use
  Company Number: US-ABBVIE-13P-163-1037700-00

PATIENT
  Sex: Female
  Weight: 99.88 kg

DRUGS (3)
  1. HUMIRA [Suspect]
     Indication: PSORIASIS
     Dates: start: 2009, end: 201207
  2. METHOTREXATE [Concomitant]
     Indication: PSORIASIS
  3. ZOLOFT [Concomitant]
     Indication: DEPRESSION

REACTIONS (3)
  - Vitamin D decreased [Not Recovered/Not Resolved]
  - Psoriasis [Not Recovered/Not Resolved]
  - Psoriasis [Not Recovered/Not Resolved]
